FAERS Safety Report 8986090 (Version 2)
Quarter: 2013Q1

REPORT INFORMATION
  Report Type: Spontaneous
  Country: DK (occurrence: None)
  Receive Date: 20121217
  Receipt Date: 20130125
  Transmission Date: 20140127
  Serious: Yes (Other)
  Sender: FDA-Public Use
  Company Number: 2012MA014079

PATIENT
  Sex: Male

DRUGS (2)
  1. DIAZEPAM TABLETS USP, 10 MG (PUREPAC) (DIAZEPAM) [Suspect]
     Dosage: 2 TABLETS?
     Route: 048
     Dates: start: 20121124
  2. ZOLPIDEM TARTRATE EXTENDED RELEASE [Suspect]
     Dosage: 5 TABLETS?
     Route: 048
     Dates: start: 20121124

REACTIONS (3)
  - Toxicity to various agents [None]
  - Dizziness [None]
  - Balance disorder [None]
